FAERS Safety Report 9210935 (Version 2)
Quarter: 2013Q2

REPORT INFORMATION
  Report Type: Spontaneous
  Country: MX (occurrence: MX)
  Receive Date: 20130404
  Receipt Date: 20130419
  Transmission Date: 20140414
  Serious: Yes (Death)
  Sender: FDA-Public Use
  Company Number: MX-ACTELION-A-CH2013-81393

PATIENT
  Age: 5 Year
  Sex: Male
  Weight: 22 kg

DRUGS (3)
  1. TRACLEER [Suspect]
     Indication: PULMONARY ARTERIAL HYPERTENSION
     Dosage: 37.5 MG, UNK
     Route: 048
  2. ALDOSTERONE [Concomitant]
     Dosage: UNK
     Dates: start: 201102
  3. SILDENAFIL [Concomitant]
     Dosage: UNK
     Dates: start: 201102

REACTIONS (2)
  - Cardiac failure [Fatal]
  - Ventricular fibrillation [Fatal]
